FAERS Safety Report 24789940 (Version 2)
Quarter: 2025Q1

REPORT INFORMATION
  Report Type: Spontaneous
  Country: JP (occurrence: JP)
  Receive Date: 20241230
  Receipt Date: 20250123
  Transmission Date: 20250409
  Serious: No
  Sender: MERCK
  Company Number: JP-MSD-M2024-55739

PATIENT
  Age: 77 Year
  Sex: Female

DRUGS (1)
  1. LAGEVRIO [Suspect]
     Active Substance: MOLNUPIRAVIR
     Indication: COVID-19 treatment
     Dosage: 800 MILLIGRAM, BID
     Route: 048
     Dates: start: 202412

REACTIONS (4)
  - Wrong technique in product usage process [Unknown]
  - Wrong technique in product usage process [Unknown]
  - Product preparation error [Unknown]
  - Product use complaint [Unknown]

NARRATIVE: CASE EVENT DATE: 20241201
